FAERS Safety Report 8437231-X (Version None)
Quarter: 2012Q2

REPORT INFORMATION
  Report Type: 
  Country: None (occurrence: None)
  Receive Date: 20120614
  Receipt Date: 20120228
  Transmission Date: 20120825
  Serious: No
  Sender: FDA-Public Use
  Company Number: US-AMGEN-USASP2011011713

PATIENT
  Age: 52 Year
  Sex: Female
  Weight: 73 kg

DRUGS (3)
  1. DIETHYLPROPION HCL [Concomitant]
     Dosage: 75 MG, QD
     Route: 048
     Dates: start: 20110225
  2. PHENTERMINE HCL [Concomitant]
     Dosage: 15 MG, QD
     Route: 048
     Dates: start: 20110110
  3. PROLIA [Suspect]
     Indication: OSTEOPOROSIS POSTMENOPAUSAL
     Dosage: 60 MG, Q6MO
     Dates: start: 20110118

REACTIONS (6)
  - BURSITIS [None]
  - ABNORMAL WEIGHT GAIN [None]
  - ARTHRALGIA [None]
  - JOINT RANGE OF MOTION DECREASED [None]
  - TENOSYNOVITIS [None]
  - PAIN [None]
